FAERS Safety Report 7542718-8 (Version None)
Quarter: 2011Q2

REPORT INFORMATION
  Report Type: 
  Country: None (occurrence: None)
  Receive Date: 20110613
  Receipt Date: 20110526
  Transmission Date: 20111010
  Serious: Yes (Death, Hospitalization)
  Sender: FDA-Public Use
  Company Number: A0834226A

PATIENT
  Sex: Male

DRUGS (1)
  1. AVANDIA [Suspect]
     Indication: DIABETES MELLITUS
     Route: 048
     Dates: end: 20070816

REACTIONS (5)
  - ARTERIOSCLEROSIS CORONARY ARTERY [None]
  - INJURY [None]
  - WOUND DEHISCENCE [None]
  - ROAD TRAFFIC ACCIDENT [None]
  - MYOCARDIAL INFARCTION [None]
